FAERS Safety Report 16297839 (Version 1)
Quarter: 2019Q2

REPORT INFORMATION
  Report Type: Spontaneous
  Country: PT (occurrence: PT)
  Receive Date: 20190510
  Receipt Date: 20190510
  Transmission Date: 20190711
  Serious: Yes (Other)
  Sender: FDA-Public Use
  Company Number: IND-PT-009507513-1905PRT001782

PATIENT
  Age: 52 Year
  Sex: Female
  Weight: 78 kg

DRUGS (7)
  1. METFORMIN [Concomitant]
     Active Substance: METFORMIN HYDROCHLORIDE
  2. EXXIV 90 MG FILM-COATED TABLETS [Suspect]
     Active Substance: ETORICOXIB
     Indication: DYSARTHRIA
     Dosage: 1 PER DAY
     Route: 048
     Dates: start: 20190419, end: 20190420
  3. VENLAFAXINE HYDROCHLORIDE. [Concomitant]
     Active Substance: VENLAFAXINE HYDROCHLORIDE
  4. STUGERON [Concomitant]
     Active Substance: CINNARIZINE
  5. CONCOR [Concomitant]
     Active Substance: BISOPROLOL FUMARATE
  6. OMEPRAZOLE. [Concomitant]
     Active Substance: OMEPRAZOLE
  7. LAMOTRIGINE. [Concomitant]
     Active Substance: LAMOTRIGINE

REACTIONS (6)
  - Face oedema [Recovered/Resolved]
  - Erythema [Recovered/Resolved]
  - Pruritus [Recovered/Resolved]
  - Dysphagia [Recovered/Resolved]
  - Dyspnoea [Recovered/Resolved]
  - Pain [Recovered/Resolved]

NARRATIVE: CASE EVENT DATE: 20190420
